FAERS Safety Report 16078775 (Version 3)
Quarter: 2021Q4

REPORT INFORMATION
  Report Type: Spontaneous
  Country: CA (occurrence: CA)
  Receive Date: 20190315
  Receipt Date: 20211106
  Transmission Date: 20220303
  Serious: Yes (Life-Threatening)
  Sender: FDA-Public Use
  Company Number: CA-AUROBINDO-AUR-APL-2019-013520

PATIENT
  Age: 66 Year
  Sex: Female
  Weight: 54 kg

DRUGS (19)
  1. CITALOPRAM [Suspect]
     Active Substance: CITALOPRAM HYDROBROMIDE
     Indication: Product used for unknown indication
     Dosage: UNK
     Route: 065
  2. ABILIFY [Suspect]
     Active Substance: ARIPIPRAZOLE
     Indication: Depression
     Dosage: UNK
     Route: 065
  3. ABILIFY [Suspect]
     Active Substance: ARIPIPRAZOLE
     Indication: Anxiety
     Dosage: UNK
     Route: 065
  4. EPIVAL [Suspect]
     Active Substance: DIVALPROEX SODIUM
     Indication: Depression
     Dosage: UNK
     Route: 065
  5. EPIVAL [Suspect]
     Active Substance: DIVALPROEX SODIUM
     Indication: Anxiety
  6. EPIVAL [Suspect]
     Active Substance: DIVALPROEX SODIUM
     Indication: Depression
     Dosage: UNK
     Route: 065
  7. EPIVAL [Suspect]
     Active Substance: DIVALPROEX SODIUM
     Indication: Anxiety
  8. RISPERDAL [Suspect]
     Active Substance: RISPERIDONE
     Indication: Depression
     Dosage: UNK
     Route: 065
  9. RISPERDAL [Suspect]
     Active Substance: RISPERIDONE
     Indication: Anxiety
  10. RISPERDAL [Suspect]
     Active Substance: RISPERIDONE
     Indication: Depression
     Dosage: UNK
     Route: 065
  11. RISPERDAL [Suspect]
     Active Substance: RISPERIDONE
     Indication: Anxiety
  12. VALPROATE SODIUM [Suspect]
     Active Substance: VALPROATE SODIUM
     Indication: Depression
     Dosage: UNK
     Route: 065
  13. VALPROATE SODIUM [Suspect]
     Active Substance: VALPROATE SODIUM
     Indication: Anxiety
  14. VALPROATE SODIUM [Suspect]
     Active Substance: VALPROATE SODIUM
     Indication: Depression
     Dosage: UNK
     Route: 065
  15. VALPROATE SODIUM [Suspect]
     Active Substance: VALPROATE SODIUM
     Indication: Anxiety
  16. DIVALPROEX SODIUM [Suspect]
     Active Substance: DIVALPROEX SODIUM
     Indication: Depression
     Dosage: UNK
     Route: 065
  17. DIVALPROEX SODIUM [Suspect]
     Active Substance: DIVALPROEX SODIUM
     Indication: Anxiety
  18. DIVALPROEX SODIUM [Suspect]
     Active Substance: DIVALPROEX SODIUM
     Indication: Depression
     Dosage: UNK
     Route: 065
  19. DIVALPROEX SODIUM [Suspect]
     Active Substance: DIVALPROEX SODIUM
     Indication: Anxiety

REACTIONS (6)
  - Alopecia [Unknown]
  - Drug interaction [Unknown]
  - Hypersomnia [Unknown]
  - Weight increased [Unknown]
  - Product use in unapproved indication [Unknown]
  - Off label use [Unknown]
